FAERS Safety Report 14095814 (Version 1)
Quarter: 2017Q4

REPORT INFORMATION
  Report Type: Spontaneous
  Country: US (occurrence: US)
  Receive Date: 20171016
  Receipt Date: 20171016
  Transmission Date: 20180321
  Serious: No
  Sender: FDA-Public Use
  Company Number: US-BAYER-2017-198445

PATIENT
  Age: 72 Year
  Sex: Male

DRUGS (5)
  1. ASPIRIN BAYER [Concomitant]
     Active Substance: ASPIRIN
     Indication: ANTICOAGULANT THERAPY
     Route: 048
  2. METFORMIN [Concomitant]
     Active Substance: METFORMIN HYDROCHLORIDE
  3. VALIUM [Concomitant]
     Active Substance: DIAZEPAM
  4. ALEVE [Suspect]
     Active Substance: NAPROXEN SODIUM
     Indication: PAIN
     Dosage: UNK
     Route: 048
     Dates: end: 20171006
  5. GLIPIZIDE. [Concomitant]
     Active Substance: GLIPIZIDE

REACTIONS (2)
  - Product use issue [Unknown]
  - Drug resistance [Unknown]

NARRATIVE: CASE EVENT DATE: 20170920
